FAERS Safety Report 10258152 (Version 1)
Quarter: 2014Q2

REPORT INFORMATION
  Report Type: Spontaneous
  Country: US (occurrence: US)
  Receive Date: 20140625
  Receipt Date: 20140625
  Transmission Date: 20141212
  Serious: No
  Sender: FDA-Public Use
  Company Number: US-009507513-1406USA000470

PATIENT
  Sex: Female

DRUGS (1)
  1. CLARITIN REDITABS [Suspect]
     Indication: WOUND COMPLICATION
     Dosage: UNK, UNKNOWN
     Route: 048
     Dates: start: 20140522

REACTIONS (2)
  - Drug ineffective for unapproved indication [Unknown]
  - Drug prescribing error [Unknown]
